FAERS Safety Report 8926194 (Version 1)
Quarter: 2012Q4

REPORT INFORMATION
  Report Type: 
  Country: US (occurrence: US)
  Receive Date: 20121126
  Receipt Date: 20121126
  Transmission Date: 20130627
  Serious: Yes (Other)
  Sender: FDA-Public Use
  Company Number: US-BAYER-2012-120012

PATIENT
  Age: 56 Year
  Sex: Female

DRUGS (1)
  1. YAZ [Suspect]
     Indication: PROPHYLAXIS
     Dosage: UNK
     Route: 048

REACTIONS (3)
  - Uterine leiomyoma [None]
  - Blood testosterone increased [None]
  - Off label use [None]
